FAERS Safety Report 25322500 (Version 3)
Quarter: 2025Q2

REPORT INFORMATION
  Report Type: Spontaneous
  Country: US (occurrence: US)
  Receive Date: 20250516
  Receipt Date: 20250623
  Transmission Date: 20250717
  Serious: No
  Sender: ELI LILLY AND COMPANY
  Company Number: US-ELI_LILLY_AND_COMPANY-US202505011635

PATIENT
  Age: 65 Year
  Sex: Female

DRUGS (4)
  1. OLUMIANT [Suspect]
     Active Substance: BARICITINIB
     Indication: Alopecia
     Route: 065
     Dates: start: 2023
  2. OLUMIANT [Suspect]
     Active Substance: BARICITINIB
     Route: 065
     Dates: start: 2023
  3. OLUMIANT [Suspect]
     Active Substance: BARICITINIB
     Route: 065
     Dates: start: 202503, end: 20250605
  4. XELJANZ [Concomitant]
     Active Substance: TOFACITINIB CITRATE
     Indication: Alopecia

REACTIONS (2)
  - Wrong technique in product usage process [Unknown]
  - Abdominal pain upper [Unknown]

NARRATIVE: CASE EVENT DATE: 20230101
